FAERS Safety Report 24976632 (Version 1)
Quarter: 2025Q1

REPORT INFORMATION
  Report Type: Spontaneous
  Country: US (occurrence: US)
  Receive Date: 20250217
  Receipt Date: 20250217
  Transmission Date: 20250408
  Serious: Yes (Hospitalization)
  Sender: SECURA BIO
  Company Number: US-SECURA BIO, INC.-SECUR-2025-US001437

PATIENT
  Age: 58 Year
  Sex: Female

DRUGS (2)
  1. COPIKTRA [Suspect]
     Active Substance: DUVELISIB
     Indication: Peripheral T-cell lymphoma unspecified
     Dosage: 75 MILLIGRAM, BID
     Route: 048
     Dates: start: 202501
  2. PREGABALIN [Concomitant]
     Active Substance: PREGABALIN
     Indication: Product used for unknown indication

REACTIONS (6)
  - Hypoaesthesia [Unknown]
  - Paraesthesia [Unknown]
  - Mobility decreased [Unknown]
  - Emergency care [Unknown]
  - Product use in unapproved indication [Unknown]
  - Off label use [Unknown]

NARRATIVE: CASE EVENT DATE: 20250125
